FAERS Safety Report 21678357 (Version 1)
Quarter: 2022Q4

REPORT INFORMATION
  Report Type: Report from Study
  Country: DE (occurrence: DE)
  Receive Date: 20221203
  Receipt Date: 20221203
  Transmission Date: 20230113
  Serious: Yes (Other)
  Sender: FDA-Public Use
  Company Number: DE-CELGENE-DEU-20181204479

PATIENT
  Sex: Female

DRUGS (11)
  1. DEXAMETHASONE [Suspect]
     Active Substance: DEXAMETHASONE
     Indication: Plasma cell myeloma
     Dosage: FREQUENCY TEXT: NOT PROVIDED, 20 MILLIGRAM, UNIT DOSE : 20 MG
     Dates: start: 20181212
  2. DEXAMETHASONE [Suspect]
     Active Substance: DEXAMETHASONE
     Dosage: FREQUENCY TEXT: NOT PROVIDED, 20 MILLIGRAM, UNIT DOSE : 20 MG
     Dates: start: 20180905
  3. DEXAMETHASONE [Suspect]
     Active Substance: DEXAMETHASONE
     Dosage: FREQUENCY TEXT: NOT PROVIDED, 20 MILLIGRAM, UNIT DOSE : 20 MG
     Dates: start: 20181121
  4. DEXAMETHASONE [Suspect]
     Active Substance: DEXAMETHASONE
     Dosage: FREQUENCY TEXT: NOT PROVIDED, 20 MILLIGRAM, UNIT DOSE : 20 MG
     Dates: start: 20181205
  5. DEXAMETHASONE [Suspect]
     Active Substance: DEXAMETHASONE
     Dosage: FREQUENCY TEXT: NOT PROVIDED, 20 MILLIGRAM, UNIT DOSE : 20 MG
     Dates: start: 20180829
  6. DEXAMETHASONE [Suspect]
     Active Substance: DEXAMETHASONE
     Dosage: FREQUENCY TEXT: NOT PROVIDED, 20 MILLIGRAM, UNIT DOSE : 20 MG
     Dates: start: 20180919
  7. DEXAMETHASONE [Suspect]
     Active Substance: DEXAMETHASONE
     Dosage: FREQUENCY TEXT: NOT PROVIDED, 20 MILLIGRAM, UNIT DOSE : 20 MG
     Dates: start: 20180912
  8. DEXAMETHASONE [Suspect]
     Active Substance: DEXAMETHASONE
     Dosage: FREQUENCY TEXT: NOT PROVIDED, 20 MILLIGRAM, UNIT DOSE : 20 MG
     Dates: start: 20181128
  9. POMALIDOMIDE [Suspect]
     Active Substance: POMALIDOMIDE
     Indication: Plasma cell myeloma
     Dosage: FREQUENCY TEXT: NOT PROVIDED, 3 MILLIGRAM, UNIT DOSE :   3 MG, DURATION : 9 DAYS
     Dates: start: 20181121, end: 20181130
  10. POMALIDOMIDE [Suspect]
     Active Substance: POMALIDOMIDE
     Dosage: FREQUENCY TEXT: NOT PROVIDED, 2 MILLIGRAM, UNIT DOSE :   2 MG, DURATION : 10 DAYS
     Dates: start: 20181201, end: 20181211
  11. POMALIDOMIDE [Suspect]
     Active Substance: POMALIDOMIDE
     Dosage: FREQUENCY TEXT: NOT PROVIDED, 3 MILLIGRAM, UNIT DOSE : 3 MG, DURATION : 20  DAYS
     Dates: start: 20180829, end: 20180918

REACTIONS (1)
  - Neutropenia [Unknown]

NARRATIVE: CASE EVENT DATE: 20181119
